FAERS Safety Report 14904570 (Version 1)
Quarter: 2018Q2

REPORT INFORMATION
  Report Type: Spontaneous
  Country: US (occurrence: US)
  Receive Date: 20180517
  Receipt Date: 20180517
  Transmission Date: 20180711
  Serious: No
  Sender: FDA-Public Use
  Company Number: US-SA-2017SA166956

PATIENT
  Sex: Female

DRUGS (2)
  1. LANTUS [Suspect]
     Active Substance: INSULIN GLARGINE
     Route: 051
     Dates: start: 201701, end: 201704
  2. TRESIBA [Suspect]
     Active Substance: INSULIN DEGLUDEC
     Route: 065

REACTIONS (2)
  - Injection site bruising [Unknown]
  - Pain [Unknown]
